FAERS Safety Report 20764003 (Version 1)
Quarter: 2022Q2

REPORT INFORMATION
  Report Type: Report from Study
  Country: BR (occurrence: BR)
  Receive Date: 20220428
  Receipt Date: 20220428
  Transmission Date: 20220721
  Serious: Yes (Other)
  Sender: FDA-Public Use
  Company Number: BR-JNJFOC-20220441690

PATIENT
  Age: 72 Year
  Sex: Female

DRUGS (5)
  1. SIMPONI [Suspect]
     Active Substance: GOLIMUMAB
     Indication: Rheumatoid arthritis
     Route: 058
     Dates: start: 20160110
  2. SIMPONI [Suspect]
     Active Substance: GOLIMUMAB
  3. QUETIAPINE FUMARATE [Concomitant]
     Active Substance: QUETIAPINE FUMARATE
     Indication: Bipolar disorder
     Route: 065
  4. TORVAL [VALPROATE SODIUM;VALPROIC ACID] [Concomitant]
     Indication: Bipolar disorder
     Route: 065
  5. ESCITALOPRAM [Concomitant]
     Active Substance: ESCITALOPRAM OXALATE
     Indication: Depression
     Route: 065

REACTIONS (6)
  - Tongue neoplasm malignant stage unspecified [Unknown]
  - Femur fracture [Unknown]
  - Bipolar disorder [Unknown]
  - Osteoporosis [Unknown]
  - Depression [Unknown]
  - Auditory disorder [Unknown]

NARRATIVE: CASE EVENT DATE: 20211101
